APPROVED DRUG PRODUCT: METHYLPREDNISOLONE SODIUM SUCCINATE
Active Ingredient: METHYLPREDNISOLONE SODIUM SUCCINATE
Strength: EQ 500MG BASE/VIAL
Dosage Form/Route: INJECTABLE;INJECTION
Application: A087851 | Product #001
Applicant: INTERNATIONAL MEDICATION SYSTEMS LTD
Approved: Feb 9, 1983 | RLD: No | RS: No | Type: DISCN